FAERS Safety Report 5137812-5 (Version None)
Quarter: 2006Q4

REPORT INFORMATION
  Report Type: 
  Country: None (occurrence: None)
  Receive Date: 20061030
  Receipt Date: 20060118
  Transmission Date: 20070319
  Serious: No
  Sender: FDA-Public Use
  Company Number: US-GLAXOSMITHKLINE-A0589865A

PATIENT
  Age: 37 Year
  Sex: Female

DRUGS (2)
  1. ADVAIR DISKUS 250/50 [Suspect]
     Indication: CHRONIC OBSTRUCTIVE PULMONARY DISEASE
     Dosage: 250MG TWICE PER DAY
     Route: 055
     Dates: start: 20060116
  2. NO CONCURRENT MEDICATION [Concomitant]

REACTIONS (3)
  - CANDIDIASIS [None]
  - COUGH [None]
  - DYSGEUSIA [None]
